FAERS Safety Report 5751923-2 (Version None)
Quarter: 2008Q2

REPORT INFORMATION
  Report Type: 
  Country: None (occurrence: None)
  Receive Date: 20080527
  Receipt Date: 20080506
  Transmission Date: 20081010
  Serious: Yes (Hospitalization)
  Sender: FDA-Public Use
  Company Number: 2008AL003702

PATIENT
  Age: 72 Year
  Sex: Male

DRUGS (5)
  1. DIGOXIN [Suspect]
     Indication: ATRIAL FIBRILLATION
     Dosage: 0.125 MG QAM PO; 0.25 MG QAM PO
     Route: 048
     Dates: start: 19910101, end: 20070801
  2. DIGOXIN [Suspect]
     Indication: ATRIAL FIBRILLATION
     Dosage: 0.125 MG QAM PO; 0.25 MG QAM PO
     Route: 048
     Dates: start: 19910101
  3. TOPROL-XL [Concomitant]
  4. LIPITOR [Concomitant]
  5. LIPITOR [Concomitant]

REACTIONS (4)
  - ANXIETY [None]
  - CARDIOACTIVE DRUG LEVEL INCREASED [None]
  - HEART RATE IRREGULAR [None]
  - PALPITATIONS [None]
